FAERS Safety Report 19146766 (Version 1)
Quarter: 2021Q2

REPORT INFORMATION
  Report Type: Spontaneous
  Country: CN (occurrence: CN)
  Receive Date: 20210416
  Receipt Date: 20210416
  Transmission Date: 20210717
  Serious: Yes (Other)
  Sender: FDA-Public Use
  Company Number: CN-PFIZER INC-2021395250

PATIENT
  Age: 48 Year
  Sex: Male
  Weight: 66 kg

DRUGS (1)
  1. METHYLPREDNISOLONE SODIUM SUCCINATE. [Suspect]
     Active Substance: METHYLPREDNISOLONE SODIUM SUCCINATE
     Indication: OBLITERATIVE BRONCHIOLITIS
     Dosage: 120.000 MG, 2X/DAY
     Route: 041
     Dates: start: 20210403, end: 20210406

REACTIONS (3)
  - Off label use [Unknown]
  - Disorganised speech [Recovering/Resolving]
  - Delirium [Recovering/Resolving]

NARRATIVE: CASE EVENT DATE: 20210403
